FAERS Safety Report 20208841 (Version 2)
Quarter: 2022Q1

REPORT INFORMATION
  Report Type: Spontaneous
  Country: US (occurrence: US)
  Receive Date: 20211220
  Receipt Date: 20220207
  Transmission Date: 20220423
  Serious: Yes (Hospitalization, Other)
  Sender: FDA-Public Use
  Company Number: US-JAZZ-2021-US-022442

PATIENT
  Age: 33 Year
  Sex: Female

DRUGS (1)
  1. XYREM [Suspect]
     Active Substance: SODIUM OXYBATE
     Indication: Product used for unknown indication
     Dosage: UNKNOWN DOSE AND FREQUENCY
     Route: 048

REACTIONS (5)
  - Myoclonus [Recovered/Resolved]
  - Suspected suicide [Unknown]
  - Depressed level of consciousness [Recovered/Resolved]
  - Agitation [Recovered/Resolved]
  - Vomiting [Recovered/Resolved]
